FAERS Safety Report 5455024-2 (Version None)
Quarter: 2007Q3

REPORT INFORMATION
  Report Type: 
  Country: None (occurrence: None)
  Receive Date: 20070918
  Receipt Date: 20070910
  Transmission Date: 20080115
  Serious: Yes (Other)
  Sender: FDA-Public Use
  Company Number: PHBS2007BE14872

PATIENT
  Age: 74 Year
  Sex: Female

DRUGS (2)
  1. LAMISIL [Suspect]
     Indication: TINEA PEDIS
     Dosage: 250 MG/DAY
     Route: 048
     Dates: start: 20060101, end: 20060101
  2. LAMISIL [Suspect]
     Dosage: 250 MG/DAY
     Route: 048
     Dates: start: 20070101, end: 20070101

REACTIONS (3)
  - COUGH [None]
  - DYSPNOEA [None]
  - MALAISE [None]
